FAERS Safety Report 25776552 (Version 2)
Quarter: 2025Q3

REPORT INFORMATION
  Report Type: Spontaneous
  Country: US (occurrence: US)
  Receive Date: 20250909
  Receipt Date: 20250909
  Transmission Date: 20251020
  Serious: No
  Sender: DOMPE FARMACEUTICI
  Company Number: US-FARMAPROD-202502-0620

PATIENT
  Sex: Female

DRUGS (20)
  1. OXERVATE [Suspect]
     Active Substance: CENEGERMIN-BKBJ
     Indication: Neurotrophic keratopathy
     Route: 047
  2. OMEPRAZOLE [Concomitant]
     Active Substance: OMEPRAZOLE
  3. TOPAMAX [Concomitant]
     Active Substance: TOPIRAMATE
  4. SERTRALINE HYDROCHLORIDE [Concomitant]
     Active Substance: SERTRALINE HYDROCHLORIDE
  5. NEOMYCIN-BACITRACIN-POLYMYXIN [Concomitant]
  6. HYDROCHLOROTHIAZIDE\LOSARTAN [Concomitant]
     Active Substance: HYDROCHLOROTHIAZIDE\LOSARTAN
  7. LATANOPROST [Concomitant]
     Active Substance: LATANOPROST
  8. LANTUS [Concomitant]
     Active Substance: INSULIN GLARGINE
  9. HYDROXYZINE HYDROCHLORIDE [Concomitant]
     Active Substance: HYDROXYZINE HYDROCHLORIDE
  10. FIASP [Concomitant]
     Active Substance: INSULIN ASPART
  11. DORZOLAMIDE AND TIMOLOL [Concomitant]
     Active Substance: DORZOLAMIDE HYDROCHLORIDE\TIMOLOL MALEATE
  12. CALCITRIOL [Concomitant]
     Active Substance: CALCITRIOL
  13. BRIMONIDINE TARTRATE;TIMOLOL [Concomitant]
  14. BISOPROLOL FUMARATE\HYDROCHLOROTHIAZIDE [Concomitant]
     Active Substance: BISOPROLOL FUMARATE\HYDROCHLOROTHIAZIDE
  15. ATROPINE SULFATE [Concomitant]
     Active Substance: ATROPINE SULFATE
  16. LIPITOR [Concomitant]
     Active Substance: ATORVASTATIN CALCIUM
  17. ASPIRIN [Concomitant]
     Active Substance: ASPIRIN
  18. ACETADOTE [Concomitant]
     Active Substance: ACETYLCYSTEINE
  19. ACETAMINOPHEN [Concomitant]
     Active Substance: ACETAMINOPHEN
  20. PRED FORTE [Concomitant]
     Active Substance: PREDNISOLONE ACETATE

REACTIONS (3)
  - Eye pain [Unknown]
  - Periorbital pain [Unknown]
  - Ocular discomfort [Unknown]
